FAERS Safety Report 19004113 (Version 1)
Quarter: 2021Q1

REPORT INFORMATION
  Report Type: Report from Study
  Country: US (occurrence: US)
  Receive Date: 20210312
  Receipt Date: 20210312
  Transmission Date: 20210420
  Serious: Yes (Hospitalization)
  Sender: FDA-Public Use
  Company Number: US-BAYER-2021-094964

PATIENT
  Age: 64 Year
  Sex: Female

DRUGS (2)
  1. STIVARGA [Suspect]
     Active Substance: REGORAFENIB
     Indication: COLON CANCER
     Dosage: 120 MG DAILY
  2. STIVARGA [Suspect]
     Active Substance: REGORAFENIB
     Indication: COLON CANCER
     Dosage: 160 MG DAILY

REACTIONS (5)
  - Diarrhoea [Recovered/Resolved]
  - Blood calcium decreased [None]
  - Blood potassium decreased [None]
  - Blood magnesium decreased [None]
  - Product dose omission issue [None]

NARRATIVE: CASE EVENT DATE: 20210303
